FAERS Safety Report 9748176 (Version 1)
Quarter: 2013Q4

REPORT INFORMATION
  Report Type: Spontaneous
  Country: US (occurrence: US)
  Receive Date: 20131212
  Receipt Date: 20131212
  Transmission Date: 20140711
  Serious: No
  Sender: FDA-Public Use
  Company Number: US-PFIZER INC-2013352812

PATIENT
  Age: 71 Year
  Sex: Female

DRUGS (18)
  1. XELJANZ [Suspect]
     Indication: RHEUMATOID ARTHRITIS
     Dosage: 5 MG, BID
     Route: 048
     Dates: end: 201312
  2. HUMULIN U [Concomitant]
     Dosage: HUMULIN U-100 PEN
  3. NEURONTIN [Concomitant]
     Dosage: UNK
  4. NEXIUM [Concomitant]
     Dosage: UNK
  5. QUINAPRIL [Concomitant]
     Dosage: UNK
  6. SINGULAIR [Concomitant]
     Dosage: UNK
  7. LIPITOR [Concomitant]
     Dosage: UNK
  8. TRICOR [Concomitant]
     Dosage: UNK
  9. TYLENOL [Concomitant]
     Dosage: UNK
  10. FELODIPINE ER [Concomitant]
     Dosage: UNK
  11. AMBIEN [Concomitant]
     Dosage: UNK
  12. CALTRATE [Concomitant]
     Dosage: UNK
  13. CENTRUM SILVER [Concomitant]
     Dosage: UNK
  14. COLACE [Concomitant]
     Dosage: UNK
  15. EFEXOR XR [Concomitant]
     Dosage: UNK
  16. FLEXERIL [Concomitant]
     Dosage: UNK
  17. FOLIC ACID [Concomitant]
     Dosage: UNK
  18. HYDROCHLOROTHIAZIDE [Concomitant]
     Dosage: UNK

REACTIONS (2)
  - Local swelling [Recovering/Resolving]
  - Drug ineffective [Unknown]
